FAERS Safety Report 21769269 (Version 4)
Quarter: 2023Q4

REPORT INFORMATION
  Report Type: Report from Study
  Country: US (occurrence: US)
  Receive Date: 20221223
  Receipt Date: 20231009
  Transmission Date: 20240109
  Serious: Yes (Hospitalization, Other)
  Sender: FDA-Public Use
  Company Number: US-ABBVIE-4247456

PATIENT
  Sex: Male

DRUGS (1)
  1. VENCLEXTA [Suspect]
     Active Substance: VENETOCLAX
     Indication: Acute myeloid leukaemia
     Dosage: 400 MILLIGRAM?FORM STRENGTH - 100 MG?TAKE FOUR TABLETS BY MOUTH EVERY DAY
     Route: 048

REACTIONS (3)
  - Hospitalisation [Unknown]
  - Off label use [Unknown]
  - Leukaemia recurrent [Not Recovered/Not Resolved]

NARRATIVE: CASE EVENT DATE: 20230101
